FAERS Safety Report 9247446 (Version 2)
Quarter: 2013Q2

REPORT INFORMATION
  Report Type: Spontaneous
  Country: US (occurrence: US)
  Receive Date: 20130423
  Receipt Date: 20130423
  Transmission Date: 20140414
  Serious: No
  Sender: FDA-Public Use
  Company Number: US-MYLANLABS-2013S1004555

PATIENT
  Age: 78 Year
  Sex: Female

DRUGS (1)
  1. LORAZEPAM TABLETS, USP [Suspect]
     Indication: ANXIETY
     Dosage: AT HS PRN
     Dates: start: 20130127, end: 2013

REACTIONS (6)
  - Pharyngeal oedema [Recovered/Resolved]
  - Nasal congestion [Recovered/Resolved]
  - Ear congestion [Recovered/Resolved]
  - Rhinorrhoea [Recovered/Resolved]
  - Throat irritation [Recovered/Resolved]
  - Insomnia [Recovered/Resolved]
